FAERS Safety Report 7157956-6 (Version None)
Quarter: 2010Q4

REPORT INFORMATION
  Report Type: 
  Country: None (occurrence: None)
  Receive Date: 20101214
  Receipt Date: 20101209
  Transmission Date: 20110411
  Serious: Yes (Death)
  Sender: FDA-Public Use
  Company Number: IT-PFIZER INC-2010160233

PATIENT
  Age: 68 Year
  Sex: Male

DRUGS (1)
  1. SUTENT [Suspect]
     Indication: RENAL CANCER
     Dosage: 50 MG, 1X/DAY
     Route: 048
     Dates: start: 20080617, end: 20080710

REACTIONS (4)
  - DISEASE PROGRESSION [None]
  - HYPERURICAEMIA [None]
  - RENAL CANCER [None]
  - RENAL FAILURE ACUTE [None]
